FAERS Safety Report 4729899-6 (Version None)
Quarter: 2005Q3

REPORT INFORMATION
  Report Type: 
  Country: None (occurrence: None)
  Receive Date: 20050728
  Receipt Date: 20050715
  Transmission Date: 20060218
  Serious: Yes (Other)
  Sender: FDA-Public Use
  Company Number: 2005103460

PATIENT
  Sex: Male
  Weight: 90.7194 kg

DRUGS (3)
  1. VIAGRA [Suspect]
     Indication: ERECTILE DYSFUNCTION
     Dosage: ORAL
     Route: 048
  2. CHONDROITIN /GLUCOSAMINE/METHYLSULFONYLMETHANE (CHONDROITIN, GLUCOSAMI [Concomitant]
  3. HERBAL PREPARATION (HERBAL PREPARATION) [Concomitant]

REACTIONS (11)
  - ABDOMINAL PAIN UPPER [None]
  - ALCOHOL USE [None]
  - ANGINA PECTORIS [None]
  - ASTHENIA [None]
  - BODY HEIGHT DECREASED [None]
  - FEELING ABNORMAL [None]
  - FEELING HOT [None]
  - NERVOUS SYSTEM DISORDER [None]
  - PAIN [None]
  - SKIN WARM [None]
  - SLEEP DISORDER [None]
